FAERS Safety Report 8584484-3 (Version None)
Quarter: 2012Q3

REPORT INFORMATION
  Report Type: 
  Country: None (occurrence: None)
  Receive Date: 20120810
  Receipt Date: 20120808
  Transmission Date: 20120928
  Serious: Yes (Other)
  Sender: FDA-Public Use
  Company Number: US-PFIZER INC-2012169650

PATIENT
  Age: 58 Year
  Sex: Male
  Weight: 73.469 kg

DRUGS (10)
  1. CHANTIX [Suspect]
     Indication: SMOKING CESSATION THERAPY
     Dosage: 0.5 MG, 1X/DAY
     Route: 048
     Dates: start: 20120501
  2. PRADAXA [Concomitant]
     Indication: ATRIAL FIBRILLATION
     Dosage: 150 MG, 2X/DAY
  3. CHANTIX [Suspect]
     Dosage: UNK
     Route: 048
     Dates: end: 20120601
  4. CHANTIX [Suspect]
     Dosage: 0.5 MG, 2X/DAY
     Route: 048
     Dates: start: 20120709, end: 20120712
  5. CHANTIX [Suspect]
     Dosage: 1 MG, 2X/DAY
     Route: 048
     Dates: start: 20120704, end: 20120708
  6. ADCIRCA [Concomitant]
     Indication: PULMONARY ARTERIAL HYPERTENSION
     Dosage: 20 MG, 2X/DAY
  7. ENALAPRIL [Concomitant]
     Indication: PULMONARY ARTERIAL HYPERTENSION
     Dosage: 5 MG, 1X/DAY
  8. CHANTIX [Suspect]
     Dosage: ONE TABLET OF 1 MG AND HALF TABLET OF 1 MG UNKNOWN FREQUENCY
     Route: 048
     Dates: start: 20120713
  9. TAZTIA XT [Concomitant]
     Indication: HEART RATE ABNORMAL
     Dosage: 240 MG, 1X/DAY
  10. CHANTIX [Suspect]
     Dosage: 0.5 MG (BY CUTTING 1MG IN HALF AND TAKING HALF TABLET OF 0.5MG), 2X/DAY
     Route: 048
     Dates: start: 20120628, end: 20120703

REACTIONS (6)
  - EMOTIONAL DISORDER [None]
  - FEELING ABNORMAL [None]
  - DYSPNOEA [None]
  - TOBACCO USER [None]
  - GASTRIC DISORDER [None]
  - ABNORMAL DREAMS [None]
